FAERS Safety Report 24623732 (Version 1)
Quarter: 2024Q4

REPORT INFORMATION
  Report Type: Spontaneous
  Country: AR (occurrence: AR)
  Receive Date: 20241115
  Receipt Date: 20241115
  Transmission Date: 20250115
  Serious: Yes (Other)
  Sender: MYLAN
  Company Number: AR-MYLANLABS-2024M1100892

PATIENT
  Sex: Female

DRUGS (1)
  1. CLOZAPINE [Suspect]
     Active Substance: CLOZAPINE
     Indication: Product used for unknown indication
     Dosage: UNK, QD (250 TO 300 MG/DAY)
     Route: 065
     Dates: start: 20111110

REACTIONS (5)
  - Breast cancer [Unknown]
  - Metastases to lung [Unknown]
  - Metastases to bone [Unknown]
  - Haematology test abnormal [Unknown]
  - Anaemia [Unknown]
